FAERS Safety Report 20429537 (Version 1)
Quarter: 2022Q1

REPORT INFORMATION
  Report Type: Spontaneous
  Country: US (occurrence: None)
  Receive Date: 20220203
  Receipt Date: 20220203
  Transmission Date: 20220423
  Serious: Yes (Other)
  Sender: FDA-Public Use
  Company Number: None

PATIENT
  Age: 17 Year
  Sex: Male
  Weight: 68.9 kg

DRUGS (3)
  1. CLARAVIS [Suspect]
     Active Substance: ISOTRETINOIN
     Indication: Acne
     Dosage: FREQUENCY : DAILY;?
     Route: 048
     Dates: start: 20211217, end: 20220114
  2. TRIKAFTA [Concomitant]
     Active Substance: ELEXACAFTOR\IVACAFTOR\TEZACAFTOR
     Dates: start: 20200102
  3. CETIRIZINE [Concomitant]
     Active Substance: CETIRIZINE HYDROCHLORIDE

REACTIONS (9)
  - Pyrexia [None]
  - Arthralgia [None]
  - Headache [None]
  - Oropharyngeal pain [None]
  - Fatigue [None]
  - Nausea [None]
  - Decreased appetite [None]
  - Arthritis [None]
  - Swelling [None]

NARRATIVE: CASE EVENT DATE: 20220114
